FAERS Safety Report 19519972 (Version 1)
Quarter: 2021Q3

REPORT INFORMATION
  Report Type: Spontaneous
  Country: US (occurrence: US)
  Receive Date: 20210712
  Receipt Date: 20210712
  Transmission Date: 20211014
  Serious: Yes (Hospitalization)
  Sender: FDA-Public Use
  Company Number: None

PATIENT
  Age: 78 Year
  Sex: Female

DRUGS (2)
  1. GLEEVEC [Suspect]
     Active Substance: IMATINIB MESYLATE
     Indication: DIFFUSE LARGE B-CELL LYMPHOMA
     Route: 048
     Dates: start: 20171118
  2. GLEEVEC [Suspect]
     Active Substance: IMATINIB MESYLATE
     Indication: LYMPHADENOPATHY
     Route: 048
     Dates: start: 20171118

REACTIONS (2)
  - Muscle spasms [None]
  - Cranial nerve disorder [None]

NARRATIVE: CASE EVENT DATE: 20210709
